FAERS Safety Report 8488759-8 (Version None)
Quarter: 2012Q3

REPORT INFORMATION
  Report Type: 
  Country: None (occurrence: None)
  Receive Date: 20120705
  Receipt Date: 20120625
  Transmission Date: 20120928
  Serious: Yes (Other)
  Sender: FDA-Public Use
  Company Number: JP-VERTEX PHARMACEUTICALS INC.-AE-2012-009543

PATIENT
  Age: 51 Year
  Sex: Male

DRUGS (4)
  1. TELAVIC (TELAPREVIR) [Suspect]
     Indication: HEPATITIS C
     Route: 048
     Dates: start: 20120420, end: 20120601
  2. REBETOL [Concomitant]
     Route: 048
     Dates: end: 20120601
  3. ALLOPURINOL [Concomitant]
     Route: 048
     Dates: start: 20120518
  4. PEG-INTRON [Concomitant]
     Route: 058
     Dates: end: 20120601

REACTIONS (1)
  - SKIN DISORDER [None]
